FAERS Safety Report 7281265-8 (Version None)
Quarter: 2011Q1

REPORT INFORMATION
  Report Type: 
  Country: None (occurrence: None)
  Receive Date: 20110208
  Receipt Date: 20110131
  Transmission Date: 20110831
  Serious: Yes (Death)
  Sender: FDA-Public Use
  Company Number: CHPA2011US02099

PATIENT
  Age: 38 Year
  Sex: Male

DRUGS (8)
  1. ACETAMINOPHEN [Suspect]
     Route: 048
  2. METAXALONE [Suspect]
     Route: 048
  3. LAMOTRIGINE [Suspect]
     Route: 048
  4. ALLOPURINOL [Suspect]
     Route: 048
  5. CAFFEINE [Suspect]
     Route: 048
  6. DRUG THERAPY NOS [Suspect]
     Route: 048
  7. SALICYLATES [Suspect]
     Route: 048
  8. CLONAZEPAM [Suspect]
     Route: 048

REACTIONS (1)
  - COMPLETED SUICIDE [None]
